FAERS Safety Report 4600036-1 (Version None)
Quarter: 2005Q1

REPORT INFORMATION
  Report Type: 
  Country: None (occurrence: None)
  Receive Date: 20050303
  Receipt Date: 20050224
  Transmission Date: 20050727
  Serious: Yes (Death)
  Sender: FDA-Public Use
  Company Number: TCI2004A04674

PATIENT
  Age: 81 Year
  Sex: Male

DRUGS (8)
  1. LANSOPRAZOLE [Suspect]
     Indication: GASTRIC ULCER
     Dosage: 30 MG (30 MG, 1 IN 1 D), PER ORAL
     Route: 048
     Dates: start: 20041125, end: 20041214
  2. DIGOXIN [Concomitant]
  3. LASIX [Concomitant]
  4. VALSARTAN (TABLETS) [Concomitant]
  5. ALLOPURINOL [Concomitant]
  6. NIFEDIPINE [Concomitant]
  7. CILOSTAZOL (TABLETS) [Concomitant]
  8. SODIUM CHLORIDE INJ [Concomitant]

REACTIONS (1)
  - INTERSTITIAL LUNG DISEASE [None]
